FAERS Safety Report 9238096 (Version 1)
Quarter: 2013Q1

REPORT INFORMATION
  Report Type: Spontaneous
  Country: US (occurrence: None)
  Receive Date: 20121106
  Receipt Date: 20121106
  Transmission Date: 20140127
  Serious: No
  Sender: FDA-Public Use
  Company Number: 1000038374

PATIENT
  Sex: Female

DRUGS (1)
  1. DALIRESP [Suspect]
     Dates: start: 201208, end: 2012

REACTIONS (1)
  - Rash papular [None]
